FAERS Safety Report 7288505-X (Version None)
Quarter: 2011Q1

REPORT INFORMATION
  Report Type: 
  Country: None (occurrence: None)
  Receive Date: 20110211
  Receipt Date: 20110210
  Transmission Date: 20110831
  Serious: Yes (Life-Threatening, Hospitalization, Disabling)
  Sender: FDA-Public Use
  Company Number: A0912898A

PATIENT
  Age: 50 Year
  Sex: Male

DRUGS (4)
  1. UNKNOWN [Concomitant]
  2. CHEMOTHERAPY [Concomitant]
  3. ARZERRA [Suspect]
     Route: 042
     Dates: start: 20110118
  4. FUROSEMIDE [Concomitant]

REACTIONS (6)
  - ACUTE RESPIRATORY DISTRESS SYNDROME [None]
  - LARYNGEAL OEDEMA [None]
  - LOCAL SWELLING [None]
  - RESPIRATORY DISTRESS [None]
  - PULMONARY OEDEMA [None]
  - PRODUCTIVE COUGH [None]
